FAERS Safety Report 19157774 (Version 1)
Quarter: 2021Q2

REPORT INFORMATION
  Report Type: Spontaneous
  Country: US (occurrence: US)
  Receive Date: 20210420
  Receipt Date: 20210420
  Transmission Date: 20210717
  Serious: No
  Sender: FDA-Public Use
  Company Number: US-ALLERGAN-2042767US

PATIENT
  Sex: Female

DRUGS (1)
  1. RISEDRONATE SODIUM 35MG TAB (TBD) [Suspect]
     Active Substance: RISEDRONATE SODIUM
     Indication: OSTEOPOROSIS
     Dosage: BEFORE MEALS IN THE AM

REACTIONS (3)
  - Off label use [Unknown]
  - Arthralgia [Unknown]
  - Myalgia [Unknown]
